FAERS Safety Report 4769851-8 (Version None)
Quarter: 2005Q3

REPORT INFORMATION
  Report Type: 
  Country: None (occurrence: None)
  Receive Date: 20050906
  Receipt Date: 20040910
  Transmission Date: 20060218
  Serious: Yes (Hospitalization, Other)
  Sender: FDA-Public Use
  Company Number: 04-000629

PATIENT
  Age: 30 Year
  Sex: Female

DRUGS (1)
  1. OVCON-35 [Suspect]
     Indication: ORAL CONTRACEPTION
     Dosage: 35/400 UG QD, ORAL
     Route: 048
     Dates: start: 20040817, end: 20040906

REACTIONS (1)
  - DEEP VEIN THROMBOSIS [None]
